FAERS Safety Report 4870709-4 (Version None)
Quarter: 2006Q1

REPORT INFORMATION
  Report Type: 
  Country: None (occurrence: None)
  Receive Date: 20060103
  Receipt Date: 20051228
  Transmission Date: 20060701
  Serious: Yes (Hospitalization)
  Sender: FDA-Public Use
  Company Number: FR-GLAXOSMITHKLINE-B0404898A

PATIENT
  Age: 16 Year
  Sex: Female

DRUGS (6)
  1. FORTUM [Suspect]
     Route: 042
     Dates: start: 20050908, end: 20051014
  2. SOLU-MEDROL [Suspect]
     Route: 048
     Dates: start: 20050913, end: 20051017
  3. VANCOMYCIN [Suspect]
     Route: 042
     Dates: start: 20050912, end: 20051014
  4. AMIKLIN [Concomitant]
     Route: 042
     Dates: start: 20050908, end: 20051014
  5. BACTRIM [Concomitant]
     Route: 048
     Dates: end: 20051009
  6. METHOTREXATE [Concomitant]
     Route: 037
     Dates: start: 20050913, end: 20050928

REACTIONS (11)
  - ASCITES [None]
  - CHOLANGIOLITIS [None]
  - CHOLANGITIS [None]
  - CHOLESTASIS [None]
  - HEPATIC FIBROSIS [None]
  - HEPATITIS [None]
  - HEPATOCELLULAR DAMAGE [None]
  - HEPATOMEGALY [None]
  - JAUNDICE [None]
  - PORTAL HYPERTENSION [None]
  - SPLENOMEGALY [None]
